FAERS Safety Report 6263164-3 (Version None)
Quarter: 2009Q3

REPORT INFORMATION
  Report Type: 
  Country: None (occurrence: None)
  Receive Date: 20090710
  Receipt Date: 20090701
  Transmission Date: 20100115
  Serious: Yes (Hospitalization)
  Sender: FDA-Public Use
  Company Number: US-WYE-H09982109

PATIENT
  Sex: Female

DRUGS (2)
  1. DESVENLAFAXINE SUCCINATE MONOHYDRATE [Suspect]
     Indication: MAJOR DEPRESSION
     Route: 048
     Dates: start: 20090522, end: 20090616
  2. TYLENOL [Concomitant]
     Dosage: UNKNOWN
     Route: 065
     Dates: start: 19870101

REACTIONS (4)
  - CONDITION AGGRAVATED [None]
  - DEPRESSION [None]
  - SKIN LACERATION [None]
  - SUICIDE ATTEMPT [None]
